FAERS Safety Report 7656653-8 (Version None)
Quarter: 2011Q3

REPORT INFORMATION
  Report Type: 
  Country: None (occurrence: None)
  Receive Date: 20110801
  Receipt Date: 20110726
  Transmission Date: 20111222
  Serious: Yes (Death)
  Sender: FDA-Public Use
  Company Number: 2011SP034807

PATIENT
  Age: 56 Year
  Sex: Female

DRUGS (3)
  1. CENTYL WITH POTASSIUM CHLORIDE (BENDROFLUMETHIAZIDE/POTASSIUM CHLORIDE [Concomitant]
  2. CORODIL (ENALAPRIL MALEATE) [Concomitant]
  3. NASONEX [Suspect]
     Indication: RHINITIS
     Dosage: 50 MCG, QD, NAS
     Route: 045
     Dates: start: 20090610

REACTIONS (2)
  - CARDIAC ARREST [None]
  - EPISTAXIS [None]
